FAERS Safety Report 4620045-6 (Version None)
Quarter: 2005Q1

REPORT INFORMATION
  Report Type: 
  Country: None (occurrence: None)
  Receive Date: 20050322
  Receipt Date: 20050322
  Transmission Date: 20050727
  Serious: No
  Sender: FDA-Public Use
  Company Number: None

PATIENT
  Age: 32 Year
  Sex: Female
  Weight: 79.3795 kg

DRUGS (1)
  1. ZICAM COLD REMEDY [Suspect]

REACTIONS (7)
  - ABASIA [None]
  - FEELING ABNORMAL [None]
  - HEADACHE [None]
  - LACRIMATION INCREASED [None]
  - NASAL DISCOMFORT [None]
  - NAUSEA [None]
  - RHINORRHOEA [None]
